FAERS Safety Report 6040059-1 (Version None)
Quarter: 2009Q1

REPORT INFORMATION
  Report Type: 
  Country: None (occurrence: None)
  Receive Date: 20090116
  Receipt Date: 20071219
  Transmission Date: 20090719
  Serious: No
  Sender: FDA-Public Use
  Company Number: US-BRISTOL-MYERS SQUIBB COMPANY-13999149

PATIENT
  Age: 19 Year
  Sex: Male

DRUGS (2)
  1. ABILIFY [Suspect]
     Indication: AUTISM SPECTRUM DISORDER
     Route: 048
     Dates: start: 20071101, end: 20071119
  2. DEPAKOTE ER [Suspect]

REACTIONS (3)
  - BALANCE DISORDER [None]
  - DISORIENTATION [None]
  - DYSARTHRIA [None]
